FAERS Safety Report 8694356 (Version 7)
Quarter: 2013Q3

REPORT INFORMATION
  Report Type: Report from Study
  Country: CA (occurrence: CA)
  Receive Date: 20120731
  Receipt Date: 20130919
  Transmission Date: 20140515
  Serious: Yes (Other)
  Sender: FDA-Public Use
  Company Number: CA-ROCHE-1071935

PATIENT
  Age: 47 Year
  Sex: Female

DRUGS (11)
  1. ZELBORAF [Suspect]
     Indication: METASTATIC MALIGNANT MELANOMA
     Route: 048
     Dates: start: 201205, end: 201309
  2. HEPARIN [Concomitant]
  3. SENOKOT [Concomitant]
  4. LACTULOSE [Concomitant]
     Route: 065
  5. MIRALAX [Concomitant]
  6. LORAZEPAM [Concomitant]
  7. METOCLOPRAMIDE [Concomitant]
  8. ONDANSETRON [Concomitant]
  9. GLYCERIN SUPPOSITORY [Concomitant]
  10. DILAUDID [Concomitant]
  11. HYDROMORPHONE [Concomitant]

REACTIONS (9)
  - Convulsion [Recovered/Resolved]
  - Convulsion [Unknown]
  - Metastases to central nervous system [Unknown]
  - Nausea [Recovered/Resolved]
  - Diarrhoea [Recovered/Resolved]
  - Abdominal discomfort [Recovering/Resolving]
  - Rash generalised [Recovering/Resolving]
  - Rash [Recovering/Resolving]
  - Disease progression [Unknown]
